FAERS Safety Report 15892393 (Version 1)
Quarter: 2019Q1

REPORT INFORMATION
  Report Type: Report from Study
  Country: US (occurrence: US)
  Receive Date: 20190130
  Receipt Date: 20190130
  Transmission Date: 20190417
  Serious: No
  Sender: FDA-Public Use
  Company Number: US-EXELIXIS-CABO-18015036

PATIENT
  Sex: Female

DRUGS (6)
  1. LISINOPRIL. [Concomitant]
     Active Substance: LISINOPRIL
  2. EXCEDRIN [Concomitant]
     Active Substance: ACETAMINOPHEN\ASPIRIN\CAFFEINE
  3. MORPHINE [Concomitant]
     Active Substance: MORPHINE
  4. TYLENOL [Concomitant]
     Active Substance: ACETAMINOPHEN
  5. CABOMETYX [Suspect]
     Active Substance: CABOZANTINIB S-MALATE
     Indication: RENAL CANCER
     Dosage: 60 MG, QD
     Route: 048
  6. ADVIL [Concomitant]
     Active Substance: IBUPROFEN

REACTIONS (3)
  - Vomiting [Unknown]
  - Stomatitis [Unknown]
  - Gastrooesophageal reflux disease [Unknown]
